FAERS Safety Report 13360165 (Version 2)
Quarter: 2017Q1

REPORT INFORMATION
  Report Type: Other
  Country: PL (occurrence: PL)
  Receive Date: 20170322
  Receipt Date: 20170331
  Transmission Date: 20170429
  Serious: Yes (Other)
  Sender: FDA-Public Use
  Company Number: PL-APOTEX-2017AP007985

PATIENT
  Sex: Female
  Weight: 54 kg

DRUGS (3)
  1. OPSUMIT [Suspect]
     Active Substance: MACITENTAN
     Indication: PULMONARY ARTERIAL HYPERTENSION
     Dosage: 10 MG, QD
     Route: 048
     Dates: start: 20160317, end: 20160603
  2. MYCOPHENOLATE MOFETIL APOTEX [Suspect]
     Active Substance: MYCOPHENOLATE MOFETIL
     Indication: HEPATITIS CHRONIC ACTIVE
     Dosage: UNK
     Route: 048
     Dates: start: 20160422, end: 20160604
  3. PARACETAMOL [Concomitant]
     Active Substance: ACETAMINOPHEN
     Indication: HEADACHE
     Dosage: UNK, 1 TO 2 TABLETS
     Route: 065

REACTIONS (3)
  - Autoimmune hepatitis [Unknown]
  - General physical condition abnormal [Unknown]
  - Liver injury [Unknown]

NARRATIVE: CASE EVENT DATE: 2016
